FAERS Safety Report 6057909-5 (Version None)
Quarter: 2009Q1

REPORT INFORMATION
  Report Type: 
  Country: None (occurrence: None)
  Receive Date: 20090126
  Receipt Date: 20090109
  Transmission Date: 20090719
  Serious: Yes (Hospitalization, Other)
  Sender: FDA-Public Use
  Company Number: 08-693

PATIENT
  Age: 45 Year
  Sex: Female

DRUGS (2)
  1. ALEVE [Suspect]
     Indication: OVERDOSE
     Dosage: 3960 MG ONCE ORAL
     Route: 048
     Dates: start: 20081223
  2. ASPIRIN [Suspect]
     Indication: OVERDOSE
     Dosage: 30 DF ONCE ORAL
     Route: 048
     Dates: start: 20081223

REACTIONS (4)
  - HEARING IMPAIRED [None]
  - INTENTIONAL OVERDOSE [None]
  - TINNITUS [None]
  - VOMITING [None]
